FAERS Safety Report 26110717 (Version 1)
Quarter: 2025Q4

REPORT INFORMATION
  Report Type: Spontaneous
  Country: TH (occurrence: TH)
  Receive Date: 20251202
  Receipt Date: 20251202
  Transmission Date: 20260117
  Serious: Yes (Death, Other)
  Sender: MERCK SHARP & DOHME LLC
  Company Number: TH-009507513-2010152

PATIENT
  Age: 75 Year
  Sex: Male
  Weight: 47 kg

DRUGS (2)
  1. KEYTRUDA [Suspect]
     Active Substance: PEMBROLIZUMAB
     Indication: Non-small cell lung cancer metastatic
     Dosage: DOSE DESCRIPTION : 100 MILLIGRAM, Q3W?DAILY DOSE : 4.7 MILLIGRAM
     Route: 042
     Dates: start: 20241011, end: 20250127
  2. KEYTRUDA [Suspect]
     Active Substance: PEMBROLIZUMAB
     Indication: Non-small cell lung cancer metastatic
     Dosage: 200 MG IV, Q3W
     Route: 042
     Dates: start: 20250217, end: 20250929

REACTIONS (8)
  - Death [Fatal]
  - Malignant neoplasm progression [Unknown]
  - Weight increased [Unknown]
  - Off label use [Recovered/Resolved]
  - Enteral nutrition [Unknown]
  - Pneumonia [Unknown]
  - Increased need for sleep [Unknown]
  - Inappropriate schedule of product administration [Unknown]

NARRATIVE: CASE EVENT DATE: 20241011
